FAERS Safety Report 14013374 (Version 2)
Quarter: 2017Q4

REPORT INFORMATION
  Report Type: Report from Study
  Country: FI (occurrence: FI)
  Receive Date: 20170926
  Receipt Date: 20171004
  Transmission Date: 20180321
  Serious: Yes (Hospitalization)
  Sender: FDA-Public Use
  Company Number: FI-SEATTLE GENETICS-2017SGN02233

PATIENT

DRUGS (10)
  1. PREDNISONE. [Suspect]
     Active Substance: PREDNISONE
     Indication: HODGKIN^S DISEASE
     Dosage: 100 MG, UNK
     Route: 065
     Dates: start: 20170909, end: 20170913
  2. ETODOLAC. [Concomitant]
     Active Substance: ETODOLAC
     Dosage: 40 MG, UNK
     Route: 065
     Dates: start: 20170905
  3. BRENTUXIMAB VEDOTIN [Suspect]
     Active Substance: BRENTUXIMAB VEDOTIN
     Indication: HODGKIN^S DISEASE
  4. ALFUZOSIN HYDROCHLORIDE. [Concomitant]
     Active Substance: ALFUZOSIN HYDROCHLORIDE
     Dosage: 10 MG, UNK
     Route: 065
     Dates: start: 20170608
  5. CYCLOPHOSPHAMIDE. [Suspect]
     Active Substance: CYCLOPHOSPHAMIDE
     Indication: HODGKIN^S DISEASE
     Dosage: 750 MG/M2, UNK
     Route: 065
     Dates: start: 20170908, end: 20170908
  6. SULFAMETHOXAZOLE, TRIMETHOPRIM [Concomitant]
     Active Substance: SULFAMETHOXAZOLE\TRIMETHOPRIM
     Dosage: UNK
     Route: 065
     Dates: start: 20170906
  7. DOXORUBICIN [Suspect]
     Active Substance: DOXORUBICIN
     Indication: HODGKIN^S DISEASE
     Dosage: 50 MG/M2, UNK
     Route: 065
     Dates: start: 20170908, end: 20170908
  8. ISONIAZID. [Concomitant]
     Active Substance: ISONIAZID
     Dosage: 300 MG, UNK
     Route: 065
     Dates: start: 20170905
  9. BRENTUXIMAB VEDOTIN [Suspect]
     Active Substance: BRENTUXIMAB VEDOTIN
     Indication: HODGKIN^S DISEASE
     Dosage: 2 MG/KG, UNK
     Route: 042
     Dates: start: 20170908, end: 20170908
  10. METOCLOPRAMIDE HYDROCHLORIDE. [Concomitant]
     Active Substance: METOCLOPRAMIDE HYDROCHLORIDE
     Dosage: 10 MG, UNK
     Route: 065
     Dates: start: 20170831

REACTIONS (1)
  - Neutropenic infection [Recovered/Resolved]

NARRATIVE: CASE EVENT DATE: 20170916
